FAERS Safety Report 23568788 (Version 1)
Quarter: 2024Q1

REPORT INFORMATION
  Report Type: Spontaneous
  Country: JP (occurrence: JP)
  Receive Date: 20240227
  Receipt Date: 20240227
  Transmission Date: 20240409
  Serious: Yes (Life-Threatening, Hospitalization, Other)
  Sender: FDA-Public Use
  Company Number: JP-BRISTOL-MYERS SQUIBB COMPANY-2024-025540

PATIENT
  Age: 52 Year
  Sex: Male
  Weight: 66.1 kg

DRUGS (1)
  1. OPDIVO [Suspect]
     Active Substance: NIVOLUMAB
     Indication: Malignant melanoma
     Dates: start: 201610

REACTIONS (11)
  - Pyrexia [Unknown]
  - Malaise [Unknown]
  - Electrocardiogram ST segment elevation [Unknown]
  - Pericarditis [Unknown]
  - Oxygen saturation decreased [Unknown]
  - Heart rate increased [Unknown]
  - Blood pressure decreased [Unknown]
  - Lung opacity [Unknown]
  - Hypokinesia [Unknown]
  - Pericardial effusion [Unknown]
  - Myocarditis [Unknown]

NARRATIVE: CASE EVENT DATE: 20171012
